FAERS Safety Report 9294810 (Version 2)
Quarter: 2014Q2

REPORT INFORMATION
  Report Type: Spontaneous
  Country: GB (occurrence: GB)
  Receive Date: 20130517
  Receipt Date: 20140403
  Transmission Date: 20141212
  Serious: Yes (Hospitalization)
  Sender: FDA-Public Use
  Company Number: GB-RANBAXY-2013R1-68868

PATIENT
  Age: 40 Year
  Sex: Male
  Weight: 107.9 kg

DRUGS (1)
  1. SERTRALINE [Suspect]
     Indication: DEPRESSION
     Dosage: 150 MG, QD
     Route: 048
     Dates: start: 20130212, end: 20130419

REACTIONS (3)
  - Diarrhoea [Recovering/Resolving]
  - Gastritis [Recovering/Resolving]
  - Rectal haemorrhage [Recovering/Resolving]
